FAERS Safety Report 16763405 (Version 2)
Quarter: 2020Q2

REPORT INFORMATION
  Report Type: Spontaneous
  Country: US (occurrence: US)
  Receive Date: 20190902
  Receipt Date: 20200616
  Transmission Date: 20200713
  Serious: Yes (Other)
  Sender: FDA-Public Use
  Company Number: US-B.I. PHARMACEUTICALS,INC./RIDGEFIELD-2019-BI-035206

PATIENT
  Age: 57 Year
  Sex: Female
  Weight: 166.92 kg

DRUGS (30)
  1. NORCO [Concomitant]
     Active Substance: ACETAMINOPHEN\HYDROCODONE BITARTRATE
     Indication: PAIN
     Dosage: 5/325; Q 6 HOURS AS NEEDED FOR MODERATE PAIN
     Route: 065
  2. HUMULIN R [Concomitant]
     Active Substance: INSULIN HUMAN
     Indication: PRODUCT USED FOR UNKNOWN INDICATION
     Dosage: 100 UNITS PER 1 ML AS PER HIGH DOSE SLIDING SCALE
     Route: 065
  3. VANCOMYCIN [Concomitant]
     Active Substance: VANCOMYCIN
     Indication: PRODUCT USED FOR UNKNOWN INDICATION
     Route: 042
  4. LANTUS [Concomitant]
     Active Substance: INSULIN GLARGINE
     Indication: PRODUCT USED FOR UNKNOWN INDICATION
     Dosage: SUBCUTANEOUS QHS
     Route: 058
  5. ZOFRAN [Concomitant]
     Active Substance: ONDANSETRON HYDROCHLORIDE
     Indication: VOMITING
  6. BENADRYL [Concomitant]
     Active Substance: DIPHENHYDRAMINE HYDROCHLORIDE
     Indication: PRURITUS
     Dosage: TAKE 1 CAPSULE (25 MG) BY ORAL  ROUTE Q 8 HRS PRN ITCHING
     Route: 048
     Dates: start: 20180904
  7. FLUCONAZOLE. [Concomitant]
     Active Substance: FLUCONAZOLE
     Indication: PRODUCT USED FOR UNKNOWN INDICATION
     Dosage: TAKE 1 TABLET (200 MG) BY ORAL ROUTE ONCE DAILY FOR 10 DAYS
     Route: 048
     Dates: start: 20180823
  8. RISAMINE [Concomitant]
     Active Substance: MENTHOL\ZINC OXIDE
     Indication: DERMATITIS DIAPER
     Dosage: 0.44-20.625% 1 APPLICATION AS NEEDED FOR DIAPER RASH
     Route: 065
  9. MAGNESIUM OXIDE. [Concomitant]
     Active Substance: MAGNESIUM OXIDE
     Indication: PRODUCT USED FOR UNKNOWN INDICATION
     Dosage: 400MG TWICE A DAY
     Route: 065
  10. VITAMIN C [Concomitant]
     Active Substance: ASCORBIC ACID
     Indication: PRODUCT USED FOR UNKNOWN INDICATION
     Dosage: TAKE 1 TABLET BY ORAL ROUTE 2 TIMES A DAY
     Route: 048
  11. GLUCOTROL [Concomitant]
     Active Substance: GLIPIZIDE
     Indication: PRODUCT USED FOR UNKNOWN INDICATION
     Dosage: TAKE 1 TABLET (10 MG) BY ORAL ROUTE ONCE DAILY BEFORE A MEAL
     Route: 048
     Dates: start: 20180823
  12. MAGNESIUM OXIDE. [Concomitant]
     Active Substance: MAGNESIUM OXIDE
     Indication: PRODUCT USED FOR UNKNOWN INDICATION
     Dosage: TAKE 1 TABLET BY ORAL ROUTE 2 TIMES A DAY
     Route: 048
  13. METANX [Concomitant]
     Active Substance: LEVOMEFOLATE CALCIUM\METHYLCOBALAMIN\PYRIDOXAL PHOSPHATE ANHYDROUS
     Indication: PRODUCT USED FOR UNKNOWN INDICATION
     Dosage: 3 MG-35 MG-2 MG -90.314 MG ORAL CAPSULE
     Route: 048
  14. NYSTATIN. [Concomitant]
     Active Substance: NYSTATIN
     Indication: PRODUCT USED FOR UNKNOWN INDICATION
     Dosage: 100000 UNIT/GRAM, BY TOPICAL ROUTE 2 TIMES PER DAY
     Route: 061
     Dates: start: 20180823
  15. PHENAZOPYRIDINE. [Concomitant]
     Active Substance: PHENAZOPYRIDINE
     Indication: PRODUCT USED FOR UNKNOWN INDICATION
     Dosage: 100MG Q 8HRS
     Route: 065
  16. ZOFRAN [Concomitant]
     Active Substance: ONDANSETRON HYDROCHLORIDE
     Indication: NAUSEA
     Dosage: 4MG IV PUSH EVERY 8 HOURS AS NEEDED FOR NAUSEA AND VOMITING
     Route: 042
  17. HYDROCORTISONE. [Concomitant]
     Active Substance: HYDROCORTISONE
     Indication: PRODUCT USED FOR UNKNOWN INDICATION
     Dosage: 2.5%, APPLY A THIN LAYER TO THE AFFECTED AREA(S) BY TOPICAL ROUTE 2 TIMES PER DAY
     Route: 061
     Dates: start: 20180823
  18. LEVEMIR [Concomitant]
     Active Substance: INSULIN DETEMIR
     Indication: PRODUCT USED FOR UNKNOWN INDICATION
     Dosage: 100UNIT/ML, INJECT 80 UNITS BY SUBCUTANEOUS ROUTE ONCE A DAY (AT BEDTIME)
     Route: 058
  19. PROTONIX [OMEPRAZOLE] [Concomitant]
     Active Substance: OMEPRAZOLE
     Indication: PRODUCT USED FOR UNKNOWN INDICATION
     Dosage: BY ORAL ROUTE ONCE DAILY FOR 30 DAYS?DR/EC
     Route: 048
     Dates: start: 20180829
  20. ACETAMINOPHEN. [Concomitant]
     Active Substance: ACETAMINOPHEN
     Indication: PAIN
     Dosage: 650 MG Q4 HOURS AS NEEDED FOR FEVER OR MILD PAIN
     Route: 065
  21. ACETAMINOPHEN. [Concomitant]
     Active Substance: ACETAMINOPHEN
     Indication: PYREXIA
  22. MORPHINE [Concomitant]
     Active Substance: MORPHINE
     Indication: PAIN
     Dosage: 2MG/1ML, 4MG AS NEEDED FOR PAIN
     Route: 065
  23. CLARITIN [Concomitant]
     Active Substance: LORATADINE
     Indication: PRODUCT USED FOR UNKNOWN INDICATION
     Dosage: TAKE 1 TABLET (10 MG) BY ORAL ROUTE ONCE DAILY FOR 30 DAYS
     Route: 048
     Dates: start: 20181028
  24. ELIQUIS [Concomitant]
     Active Substance: APIXABAN
     Indication: PRODUCT USED FOR UNKNOWN INDICATION
     Dosage: TAKE 1 TABLET (5 MG) BY ORAL ROUTE 2 TIMES PER DAY
     Route: 048
  25. MIRALAX [Concomitant]
     Active Substance: POLYETHYLENE GLYCOL 3350
     Indication: PRODUCT USED FOR UNKNOWN INDICATION
     Dosage: MIXED WITH 8 OZ. WATER, JUICE, SODA, COFFEE OR TEA BY ORAL ROUTE ONCE DAILY FOR 4 DAYS
     Route: 048
     Dates: start: 20180904
  26. JARDIANCE [Suspect]
     Active Substance: EMPAGLIFLOZIN
     Indication: TYPE 2 DIABETES MELLITUS
     Route: 048
     Dates: start: 20170425
  27. APIXABAN [Concomitant]
     Active Substance: APIXABAN
     Indication: PRODUCT USED FOR UNKNOWN INDICATION
     Dosage: 5 MG TWICE A DAY
     Route: 065
  28. MAGNESIUM HYDROXIDE. [Concomitant]
     Active Substance: MAGNESIUM HYDROXIDE
     Indication: CONSTIPATION
     Dosage: 400MG/5ML, 30 ML AS NEEDED FOR CONSTIPATION
     Route: 065
  29. HYDROCODONE/ACETAMINOPHEN [Concomitant]
     Active Substance: ACETAMINOPHEN\HYDROCODONE
     Indication: PAIN
     Dosage: 5-325 MG, TAKE 1 TABLET BY ORAL ROUTE EVERY 6 HOURS AS NEEDED FOR PAIN
     Route: 048
  30. ZINC SULFATE. [Concomitant]
     Active Substance: ZINC SULFATE
     Indication: PRODUCT USED FOR UNKNOWN INDICATION
     Route: 048
     Dates: start: 20180823

REACTIONS (3)
  - Acute kidney injury [Unknown]
  - Sepsis [Recovered/Resolved]
  - Fournier^s gangrene [Unknown]

NARRATIVE: CASE EVENT DATE: 20180710
